FAERS Safety Report 4282122-1 (Version None)
Quarter: 2004Q1

REPORT INFORMATION
  Report Type: 
  Country: None (occurrence: None)
  Receive Date: 20040130
  Receipt Date: 20030908
  Transmission Date: 20041129
  Serious: Yes (Hospitalization)
  Sender: FDA-Public Use
  Company Number: US-BRISTOL-MYERS SQUIBB COMPANY-12376661

PATIENT
  Age: 40 Year
  Sex: Male
  Weight: 100 kg

DRUGS (5)
  1. TRAZODONE HCL [Suspect]
     Indication: INSOMNIA
     Route: 048
     Dates: start: 20030829, end: 20030830
  2. RISPERDAL [Concomitant]
     Dosage: ^FOR A COUPLE OF DAYS^.
  3. ZOLOFT [Concomitant]
     Dosage: ONCE IN THE MORNING FOR A COUPLE OF DAYS.
  4. LIBRIUM [Concomitant]
  5. NEURONTIN [Concomitant]
     Dosage: FOR 3-4 DAYS

REACTIONS (1)
  - PRIAPISM [None]
